FAERS Safety Report 7230077-X (Version None)
Quarter: 2011Q1

REPORT INFORMATION
  Report Type: 
  Country: None (occurrence: None)
  Receive Date: 20110118
  Receipt Date: 20110107
  Transmission Date: 20110831
  Serious: No
  Sender: FDA-Public Use
  Company Number: US-BIOGENIDEC-2010BI033461

PATIENT
  Age: 62 Year
  Sex: Female

DRUGS (1)
  1. TYSABRI [Suspect]
     Indication: MULTIPLE SCLEROSIS
     Route: 042
     Dates: start: 20080822

REACTIONS (7)
  - INFLUENZA [None]
  - PYREXIA [None]
  - CHEST PAIN [None]
  - HEADACHE [None]
  - DEPRESSION [None]
  - UPPER RESPIRATORY TRACT INFECTION [None]
  - LARYNGITIS [None]
